FAERS Safety Report 6092325-1 (Version None)
Quarter: 2009Q1

REPORT INFORMATION
  Report Type: 
  Country: None (occurrence: None)
  Receive Date: 20090225
  Receipt Date: 20090217
  Transmission Date: 20090719
  Serious: Yes (Hospitalization, Other)
  Sender: FDA-Public Use
  Company Number: US-ABBOTT-09P-163-0558172-00

PATIENT
  Sex: Male
  Weight: 90.8 kg

DRUGS (16)
  1. SIMCOR [Suspect]
     Indication: LOW DENSITY LIPOPROTEIN INCREASED
     Dosage: 1000/40 MG
     Route: 048
     Dates: start: 20081201
  2. SIMCOR [Suspect]
     Indication: HIGH DENSITY LIPOPROTEIN DECREASED
     Dosage: 500/20 MG
     Route: 048
     Dates: end: 20081201
  3. SIMCOR [Suspect]
     Indication: BLOOD TRIGLYCERIDES INCREASED
  4. CELEXA [Suspect]
     Indication: ANXIETY
     Dates: start: 20081201
  5. CELEXA [Suspect]
  6. XANAX XL [Concomitant]
     Indication: ANXIETY
  7. MAG OX [Concomitant]
     Indication: MYOCARDIAL INFARCTION
     Dates: start: 20050101
  8. LOVAZA [Concomitant]
     Indication: MYOCARDIAL INFARCTION
  9. LOPRESSOR [Concomitant]
     Indication: HYPERTENSION
  10. HYDROXYUREA [Concomitant]
     Indication: POLYCYTHAEMIA VERA
  11. ASPIRIN [Concomitant]
     Indication: MYOCARDIAL INFARCTION
  12. DIOVAN [Concomitant]
     Indication: HYPERTENSION
  13. FOLTEX [Concomitant]
     Indication: MYOCARDIAL INFARCTION
  14. KLOR-CON [Concomitant]
     Indication: MYOCARDIAL INFARCTION
  15. PLAVIX [Concomitant]
     Indication: MYOCARDIAL INFARCTION
  16. SYNTHROID [Concomitant]
     Indication: THYROIDECTOMY

REACTIONS (8)
  - BLOOD MAGNESIUM DECREASED [None]
  - DEHYDRATION [None]
  - DIARRHOEA [None]
  - ERECTILE DYSFUNCTION [None]
  - HEART RATE INCREASED [None]
  - LUNG NEOPLASM [None]
  - MUSCULOSKELETAL STIFFNESS [None]
  - VOMITING [None]
